FAERS Safety Report 16507181 (Version 1)
Quarter: 2019Q3

REPORT INFORMATION
  Report Type: Spontaneous
  Country: US (occurrence: US)
  Receive Date: 20190701
  Receipt Date: 20190701
  Transmission Date: 20191004
  Serious: No
  Sender: FDA-Public Use
  Company Number: US-ENDO PHARMACEUTICALS INC-2018-040497

PATIENT
  Sex: Male
  Weight: 80.73 kg

DRUGS (3)
  1. INSULIN [Concomitant]
     Active Substance: INSULIN NOS
     Indication: DIABETES MELLITUS
  2. EDEX [Suspect]
     Active Substance: ALPROSTADIL
     Indication: ERECTILE DYSFUNCTION
     Dosage: 20 MCG, ^AS PER VIDEO^
     Route: 065
     Dates: start: 201807
  3. EDEX [Suspect]
     Active Substance: ALPROSTADIL
     Dosage: 20 MCG, SECOND INJECTION
     Route: 065

REACTIONS (4)
  - Wrong technique in product usage process [Unknown]
  - Penile burning sensation [Not Recovered/Not Resolved]
  - Product complaint [Unknown]
  - Drug ineffective [Unknown]

NARRATIVE: CASE EVENT DATE: 2018
